FAERS Safety Report 5403387-6 (Version None)
Quarter: 2007Q3

REPORT INFORMATION
  Report Type: 
  Country: None (occurrence: None)
  Receive Date: 20070730
  Receipt Date: 20070716
  Transmission Date: 20080115
  Serious: Yes (Death, Hospitalization)
  Sender: FDA-Public Use
  Company Number: 17028

PATIENT
  Age: 3 Year
  Sex: Female

DRUGS (3)
  1. CISPLATIN [Suspect]
     Indication: OVARIAN GERM CELL CANCER
  2. ETOPOSIDE [Suspect]
     Indication: OVARIAN GERM CELL CANCER
  3. BLEOMYCIN [Suspect]
     Indication: OVARIAN GERM CELL CANCER

REACTIONS (3)
  - GENE MUTATION IDENTIFICATION TEST POSITIVE [None]
  - MULTI-ORGAN FAILURE [None]
  - SYSTEMIC MASTOCYTOSIS [None]
